FAERS Safety Report 8500367-9 (Version None)
Quarter: 2012Q3

REPORT INFORMATION
  Report Type: 
  Country: None (occurrence: None)
  Receive Date: 20120705
  Receipt Date: 20120705
  Transmission Date: 20120928
  Serious: Yes (Disabling)
  Sender: FDA-Public Use
  Company Number: None

PATIENT
  Age: 20 Year
  Sex: Female
  Weight: 58.9676 kg

DRUGS (1)
  1. CELEXA [Suspect]
     Indication: SOCIAL PHOBIA
     Dosage: 30 MG, DAILY, PO
     Route: 048
     Dates: start: 20000920, end: 20030701

REACTIONS (2)
  - DISCOMFORT [None]
  - HUNGER [None]
